FAERS Safety Report 12190917 (Version 2)
Quarter: 2016Q2

REPORT INFORMATION
  Report Type: Spontaneous
  Country: CH (occurrence: CH)
  Receive Date: 20160318
  Receipt Date: 20160413
  Transmission Date: 20160815
  Serious: Yes (Hospitalization)
  Sender: FDA-Public Use
  Company Number: CH-ASTRAZENECA-2016SE27561

PATIENT
  Age: 28483 Day
  Sex: Female

DRUGS (7)
  1. OPIUM. [Concomitant]
     Active Substance: OPIUM
     Indication: INFLAMMATORY BOWEL DISEASE
     Dosage: OCCASIONALLY
  2. RANIMED [Concomitant]
     Active Substance: RANITIDINE HYDROCHLORIDE
     Dosage: 1-0-0-0
  3. ELTROXIN LF [Concomitant]
     Dosage: 1-0-0-0
  4. ELTROXIN LF [Concomitant]
     Dosage: 1-0-0-0
  5. IBEROGAST [Concomitant]
     Active Substance: HERBALS
     Dosage: 20-20-20-0
  6. ZOMIG [Suspect]
     Active Substance: ZOLMITRIPTAN
     Indication: MIGRAINE
     Route: 048
     Dates: start: 20160222
  7. SALOFALK [Concomitant]
     Active Substance: MESALAMINE
     Dosage: 1-0-0-0

REACTIONS (3)
  - Aphasia [Unknown]
  - Somnolence [Unknown]
  - Dysarthria [Unknown]

NARRATIVE: CASE EVENT DATE: 20160222
